APPROVED DRUG PRODUCT: VILAZODONE HYDROCHLORIDE
Active Ingredient: VILAZODONE HYDROCHLORIDE
Strength: 40MG
Dosage Form/Route: TABLET;ORAL
Application: A208228 | Product #003 | TE Code: AB
Applicant: APOTEX INC
Approved: Jul 7, 2023 | RLD: No | RS: No | Type: RX